FAERS Safety Report 5849372-1 (Version None)
Quarter: 2008Q3

REPORT INFORMATION
  Report Type: 
  Country: None (occurrence: None)
  Receive Date: 20080815
  Receipt Date: 20080805
  Transmission Date: 20090109
  Serious: Yes (Death)
  Sender: FDA-Public Use
  Company Number: A-US2008-19683

PATIENT
  Age: 61 Year
  Sex: Female

DRUGS (3)
  1. VENTAVIS [Suspect]
     Indication: PULMONARY HYPERTENSION
     Dosage: RESPIRATORY
     Route: 055
     Dates: start: 20070606
  2. TRACLEER [Concomitant]
  3. REVATIO [Concomitant]

REACTIONS (2)
  - PULMONARY HYPERTENSION [None]
  - SCLERODERMA [None]
